FAERS Safety Report 11321913 (Version 3)
Quarter: 2016Q2

REPORT INFORMATION
  Report Type: Report from Study
  Country: US (occurrence: US)
  Receive Date: 20150729
  Receipt Date: 20160602
  Transmission Date: 20160815
  Serious: No
  Sender: FDA-Public Use
  Company Number: PHHY2014US084057

PATIENT
  Age: 55 Year
  Sex: Female

DRUGS (4)
  1. GILENYA [Suspect]
     Active Substance: FINGOLIMOD HYDROCHLORIDE
     Indication: MULTIPLE SCLEROSIS
     Dosage: QD
     Route: 048
  2. RANITIDINE. [Concomitant]
     Active Substance: RANITIDINE
     Indication: MULTIPLE SCLEROSIS RELAPSE
     Dosage: 150 MG, BID (WHILE ON ORAL STEROIDS)
     Route: 048
     Dates: start: 20160222, end: 20160302
  3. MEDROL [Concomitant]
     Active Substance: METHYLPREDNISOLONE
     Dosage: PRN, (AS DIRECTED, START AFTER YOU HAVE FINISHED WITH IV STEROIDS)
     Route: 065
     Dates: start: 20160222, end: 20160302
  4. SOLU-MEDROL [Concomitant]
     Active Substance: METHYLPREDNISOLONE SODIUM SUCCINATE
     Indication: MULTIPLE SCLEROSIS RELAPSE
     Dosage: 1G IN 250CCS IN NS IV ONCE A DAY X 5DAYS
     Route: 042
     Dates: start: 20160222, end: 20160226

REACTIONS (7)
  - Vitamin D deficiency [Unknown]
  - Fatigue [Unknown]
  - Blood immunoglobulin A decreased [Unknown]
  - Blood immunoglobulin G decreased [Unknown]
  - Heart rate irregular [Recovered/Resolved]
  - Blood immunoglobulin M increased [Unknown]
  - Muscle spasticity [Unknown]

NARRATIVE: CASE EVENT DATE: 20140401
